FAERS Safety Report 12161238 (Version 1)
Quarter: 2016Q1

REPORT INFORMATION
  Report Type: Report from Study
  Country: JP (occurrence: JP)
  Receive Date: 20160308
  Receipt Date: 20160308
  Transmission Date: 20160526
  Serious: No
  Sender: FDA-Public Use
  Company Number: JP-FRI-1000082945

PATIENT
  Age: 42 Year
  Sex: Male
  Weight: 92.7 kg

DRUGS (13)
  1. CARIPRAZINE [Suspect]
     Active Substance: CARIPRAZINE
     Dosage: 9 MG
     Dates: start: 20150206, end: 20150430
  2. BEZAFIBRATE [Concomitant]
     Active Substance: BEZAFIBRATE
     Dates: start: 20150223
  3. MYDRIN-P [Concomitant]
     Active Substance: PHENYLEPHRINE HYDROCHLORIDE\TROPICAMIDE
     Dates: start: 20150210, end: 20150210
  4. MYDRIN-P [Concomitant]
     Active Substance: PHENYLEPHRINE HYDROCHLORIDE\TROPICAMIDE
     Dates: start: 20150512, end: 20150512
  5. CARIPRAZINE (OPEN-LABEL) [Suspect]
     Active Substance: CARIPRAZINE
     Indication: SCHIZOPHRENIA
     Route: 048
     Dates: start: 20150501, end: 20150528
  6. MYDRIN-P [Concomitant]
     Active Substance: PHENYLEPHRINE HYDROCHLORIDE\TROPICAMIDE
     Dates: start: 20151201, end: 20151201
  7. CARIPRAZINE (OPEN-LABEL) [Suspect]
     Active Substance: CARIPRAZINE
     Route: 048
     Dates: start: 20151002, end: 20160216
  8. MYDRIN-P [Concomitant]
     Active Substance: PHENYLEPHRINE HYDROCHLORIDE\TROPICAMIDE
     Dates: start: 20150623, end: 20150623
  9. MYDRIN-P [Concomitant]
     Active Substance: PHENYLEPHRINE HYDROCHLORIDE\TROPICAMIDE
     Dates: start: 20160209, end: 20160209
  10. ARIPIPRAZOLE. [Concomitant]
     Active Substance: ARIPIPRAZOLE
     Dates: start: 20160217
  11. CARIPRAZINE (OPEN-LABEL) [Suspect]
     Active Substance: CARIPRAZINE
     Route: 048
     Dates: start: 20150529, end: 20151001
  12. MYDRIN-P [Concomitant]
     Active Substance: PHENYLEPHRINE HYDROCHLORIDE\TROPICAMIDE
     Dates: start: 20150331, end: 20150331
  13. MYDRIN-P [Concomitant]
     Active Substance: PHENYLEPHRINE HYDROCHLORIDE\TROPICAMIDE
     Dates: start: 20150901, end: 20150901

REACTIONS (1)
  - Detachment of retinal pigment epithelium [Not Recovered/Not Resolved]

NARRATIVE: CASE EVENT DATE: 20160219
